FAERS Safety Report 9555602 (Version 1)
Quarter: 2013Q3

REPORT INFORMATION
  Report Type: Spontaneous
  Country: US (occurrence: US)
  Receive Date: 20130926
  Receipt Date: 20130926
  Transmission Date: 20140515
  Serious: Yes (Death)
  Sender: FDA-Public Use
  Company Number: US-PFIZER INC-2013275367

PATIENT
  Age: 60 Year
  Sex: Male

DRUGS (1)
  1. INLYTA [Suspect]
     Dosage: 4 MG, TWICE DAILY (4 TABS OF 1 MG, Q 12 HRS)
     Route: 048
     Dates: start: 20120918

REACTIONS (1)
  - Death [Fatal]
